FAERS Safety Report 7414126-1 (Version None)
Quarter: 2011Q2

REPORT INFORMATION
  Report Type: 
  Country: None (occurrence: None)
  Receive Date: 20110411
  Receipt Date: 20110411
  Transmission Date: 20111010
  Serious: Yes (Disabling)
  Sender: FDA-Public Use
  Company Number: None

PATIENT
  Sex: Female
  Weight: 74.8435 kg

DRUGS (2)
  1. OXYCONTIN [Suspect]
     Dosage: 240 MG 1 X DAY ORALLY
     Route: 048
  2. OXYCONTIN [Suspect]
     Indication: COMPLEX REGIONAL PAIN SYNDROME
     Dosage: 200 MG 2X DAY ORALLY
     Route: 048
     Dates: start: 20110201

REACTIONS (9)
  - CONFUSIONAL STATE [None]
  - FATIGUE [None]
  - NASAL CONGESTION [None]
  - CONSTIPATION [None]
  - PAIN [None]
  - DEPRESSION [None]
  - DISTURBANCE IN ATTENTION [None]
  - DRUG EFFECT DECREASED [None]
  - HEADACHE [None]
